FAERS Safety Report 24819158 (Version 4)
Quarter: 2025Q2

REPORT INFORMATION
  Report Type: Spontaneous
  Country: NL (occurrence: NL)
  Receive Date: 20250108
  Receipt Date: 20250515
  Transmission Date: 20250716
  Serious: Yes (Other)
  Sender: TEVA
  Company Number: NL-TEVA-VS-3283710

PATIENT
  Age: 65 Year
  Sex: Female

DRUGS (1)
  1. PROPRANOLOL [Suspect]
     Active Substance: PROPRANOLOL HYDROCHLORIDE
     Indication: Product used for unknown indication
     Route: 065
     Dates: start: 20241119

REACTIONS (2)
  - Palpitations [Not Recovered/Not Resolved]
  - Product dispensing issue [Unknown]

NARRATIVE: CASE EVENT DATE: 20241101
